FAERS Safety Report 14469448 (Version 2)
Quarter: 2020Q1

REPORT INFORMATION
  Report Type: Other
  Country: US (occurrence: US)
  Receive Date: 20180131
  Receipt Date: 20200126
  Transmission Date: 20200409
  Serious: No
  Sender: FDA-Public Use
  Company Number: US-ACORDA-ACO_140843_2017

PATIENT
  Age: 44 Year
  Sex: Female

DRUGS (4)
  1. AMPYRA [Suspect]
     Active Substance: DALFAMPRIDINE
     Indication: MULTIPLE SCLEROSIS
  2. AMPYRA [Suspect]
     Active Substance: DALFAMPRIDINE
     Indication: FATIGUE
  3. TECFIDERA [Suspect]
     Active Substance: DIMETHYL FUMARATE
     Indication: MULTIPLE SCLEROSIS
     Dosage: 240 MG, 2 FOR 1 DAY
     Route: 048
     Dates: start: 20150718
  4. AMPYRA [Suspect]
     Active Substance: DALFAMPRIDINE
     Indication: ASTHENIA
     Dosage: 10 MG, Q 12 HRS
     Route: 065
     Dates: start: 20170810, end: 20170820

REACTIONS (6)
  - Flushing [Recovered/Resolved]
  - Product use in unapproved indication [Unknown]
  - Condition aggravated [Recovered/Resolved]
  - Pruritus [Recovered/Resolved]
  - Paraesthesia [Recovered/Resolved]
  - Headache [Recovered/Resolved]

NARRATIVE: CASE EVENT DATE: 20170810
